FAERS Safety Report 8227767-9 (Version None)
Quarter: 2012Q1

REPORT INFORMATION
  Report Type: 
  Country: None (occurrence: None)
  Receive Date: 20120322
  Receipt Date: 20120312
  Transmission Date: 20120608
  Serious: No
  Sender: FDA-Public Use
  Company Number: US-B.I. PHARMACEUTICALS,INC./RIDGEFIELD-2012-BP-04744BP

PATIENT
  Sex: Female

DRUGS (5)
  1. PRADAXA [Suspect]
     Indication: ATRIAL FIBRILLATION
     Dosage: 300 MG
     Route: 048
     Dates: start: 20120228, end: 20120306
  2. PRILOSEC [Concomitant]
     Indication: DYSPEPSIA
     Route: 048
  3. SOMETHING FOR LOW THYROID [Concomitant]
     Indication: HYPOTHYROIDISM
  4. IBUPROFEN [Concomitant]
     Indication: PAIN
     Dosage: 400 MG
     Route: 048
     Dates: start: 20120122
  5. PRADAXA [Suspect]
     Dosage: 150 MG
     Route: 048
     Dates: start: 20120312

REACTIONS (2)
  - NAUSEA [None]
  - CONSTIPATION [None]
